FAERS Safety Report 26044940 (Version 2)
Quarter: 2025Q4

REPORT INFORMATION
  Report Type: Report from Study
  Country: US (occurrence: US)
  Receive Date: 20251114
  Receipt Date: 20251202
  Transmission Date: 20260118
  Serious: Yes (Hospitalization)
  Sender: CSL BEHRING
  Company Number: US-BEH-2025225067

PATIENT
  Age: 41 Year
  Sex: Female

DRUGS (8)
  1. GARADACIMAB [Suspect]
     Active Substance: GARADACIMAB
     Indication: Hereditary angioedema
     Dosage: 400 MG (LOADING DOSE)
     Route: 058
  2. GARADACIMAB [Suspect]
     Active Substance: GARADACIMAB
     Indication: Prophylaxis
     Dosage: 200 MG, QMT
     Route: 058
  3. GARADACIMAB [Suspect]
     Active Substance: GARADACIMAB
     Dosage: 400 MG, QMT
     Route: 058
  4. ICATIBANT ACETATE [Concomitant]
     Active Substance: ICATIBANT ACETATE
     Dosage: 30 MG/3ML
  5. ALBUTEROL SULFATE [Concomitant]
     Active Substance: ALBUTEROL SULFATE
  6. LEVOCETIRIZINE DIHYDROCHLORIDE [Concomitant]
     Active Substance: LEVOCETIRIZINE DIHYDROCHLORIDE
     Dosage: 5 MG
  7. EPIPEN [Concomitant]
     Active Substance: EPINEPHRINE
     Dosage: 0.3 MG/0.3ML
  8. MIRENA [Concomitant]
     Active Substance: LEVONORGESTREL
     Indication: Intrauterine contraception
     Dosage: UNK
     Route: 065

REACTIONS (2)
  - Hospitalisation [Unknown]
  - Product storage error [Unknown]

NARRATIVE: CASE EVENT DATE: 20251030
